FAERS Safety Report 8817610 (Version 2)
Quarter: 2013Q1

REPORT INFORMATION
  Report Type: Spontaneous
  Country: US (occurrence: US)
  Receive Date: 20121001
  Receipt Date: 20130110
  Transmission Date: 20140127
  Serious: No
  Sender: FDA-Public Use
  Company Number: US-009507513-1208USA012509

PATIENT
  Age: 52 Year
  Sex: Female

DRUGS (4)
  1. AZASITE [Suspect]
     Indication: EPISCLERITIS
     Dosage: 1 GTT, QD
     Route: 047
     Dates: start: 20120731
  2. AZASITE [Suspect]
     Indication: EYE DISORDER
  3. METOPROLOL [Concomitant]
  4. HYDROCHLOROTHIAZIDE (+) TRIAMTERENE [Concomitant]

REACTIONS (6)
  - Ocular hyperaemia [Not Recovered/Not Resolved]
  - Scab [Not Recovered/Not Resolved]
  - Visual impairment [Not Recovered/Not Resolved]
  - Drug dose omission [Unknown]
  - Incorrect drug administration duration [Unknown]
  - Product quality issue [Unknown]
